FAERS Safety Report 11592627 (Version 2)
Quarter: 2015Q4

REPORT INFORMATION
  Report Type: Spontaneous
  Country: IT (occurrence: IT)
  Receive Date: 20151005
  Receipt Date: 20151106
  Transmission Date: 20160304
  Serious: Yes (Hospitalization)
  Sender: FDA-Public Use
  Company Number: IT-TEVA-596543ACC

PATIENT
  Age: 88 Year
  Sex: Female

DRUGS (1)
  1. TICLOPIDINE HYDROCHLORIDE. [Suspect]
     Active Substance: TICLOPIDINE HYDROCHLORIDE
     Indication: THROMBOSIS PROPHYLAXIS
     Dosage: 250 MILLIGRAM DAILY;
     Route: 048

REACTIONS (3)
  - Melaena [Unknown]
  - Syncope [Unknown]
  - Injury [Unknown]

NARRATIVE: CASE EVENT DATE: 20150919
